FAERS Safety Report 5639917-9 (Version None)
Quarter: 2008Q1

REPORT INFORMATION
  Report Type: 
  Country: None (occurrence: None)
  Receive Date: 20080225
  Receipt Date: 20080212
  Transmission Date: 20080703
  Serious: Yes (Life-Threatening)
  Sender: FDA-Public Use
  Company Number: B0508713A

PATIENT
  Age: 55 Year
  Sex: Female

DRUGS (3)
  1. RELENZA [Suspect]
     Indication: INFLUENZA
     Dates: start: 20080127, end: 20080129
  2. AMOX. TRIHYD+POT. CLAVULAN. [Concomitant]
  3. ACETAMINOPHEN [Concomitant]

REACTIONS (3)
  - HYPERSENSITIVITY [None]
  - LARYNGEAL OEDEMA [None]
  - RASH [None]
